FAERS Safety Report 4762181-X (Version None)
Quarter: 2005Q3

REPORT INFORMATION
  Report Type: 
  Country: None (occurrence: None)
  Receive Date: 20050906
  Receipt Date: 20050906
  Transmission Date: 20060218
  Serious: Yes (Hospitalization)
  Sender: FDA-Public Use
  Company Number: None

PATIENT
  Age: 26 Year
  Sex: Male
  Weight: 108.8633 kg

DRUGS (1)
  1. INVANZ [Suspect]
     Indication: LOCALISED INFECTION
     Dosage: 1, 000 MG IV Q 24 HOURS
     Route: 042
     Dates: start: 20050809, end: 20050817

REACTIONS (1)
  - PLATELET COUNT DECREASED [None]
